FAERS Safety Report 15613300 (Version 1)
Quarter: 2018Q4

REPORT INFORMATION
  Report Type: Spontaneous
  Country: FR (occurrence: FR)
  Receive Date: 20181113
  Receipt Date: 20181113
  Transmission Date: 20190205
  Serious: Yes (Hospitalization)
  Sender: FDA-Public Use
  Company Number: FR-MYLANLABS-2018M1085943

PATIENT
  Age: 2 Year
  Sex: Male
  Weight: 14 kg

DRUGS (1)
  1. METHOTREXATE MYLAN [Suspect]
     Active Substance: METHOTREXATE SODIUM
     Indication: LEUKAEMIA
     Dosage: 10 MG, QD
     Route: 037
     Dates: start: 20180328, end: 20180407

REACTIONS (1)
  - Anal inflammation [Recovered/Resolved with Sequelae]

NARRATIVE: CASE EVENT DATE: 20180409
